FAERS Safety Report 10253422 (Version 1)
Quarter: 2014Q2

REPORT INFORMATION
  Report Type: Spontaneous
  Country: US (occurrence: US)
  Receive Date: 20140623
  Receipt Date: 20140623
  Transmission Date: 20141212
  Serious: Yes (Other)
  Sender: FDA-Public Use
  Company Number: US-CELGENEUS-163-20785-14063519

PATIENT
  Age: 72 Year
  Sex: Female

DRUGS (5)
  1. THALOMID [Suspect]
     Indication: PLASMA CELL MYELOMA
     Dosage: 200 MILLIGRAM
     Route: 048
     Dates: start: 201111, end: 20121011
  2. VELCADE [Concomitant]
     Indication: PLASMA CELL MYELOMA
     Route: 065
     Dates: start: 20110203
  3. VELCADE [Concomitant]
     Route: 065
     Dates: start: 20110815, end: 20111027
  4. VELCADE [Concomitant]
     Route: 065
     Dates: start: 20121011, end: 20131212
  5. DEXAMETHASONE [Concomitant]
     Indication: PLASMA CELL MYELOMA
     Dosage: 20 MILLIGRAM
     Route: 065
     Dates: start: 20110203, end: 20111027

REACTIONS (1)
  - Malignant melanoma stage II [Unknown]
